FAERS Safety Report 19650904 (Version 4)
Quarter: 2022Q1

REPORT INFORMATION
  Report Type: Spontaneous
  Country: JP (occurrence: JP)
  Receive Date: 20210802
  Receipt Date: 20220119
  Transmission Date: 20220423
  Serious: Yes (Hospitalization, Disabling, Other)
  Sender: FDA-Public Use
  Company Number: JP-BMKK-BMS-2021-072504AA

PATIENT
  Age: 41 Year
  Sex: Female
  Weight: 48 kg

DRUGS (11)
  1. TRIAMCINOLONE ACETONIDE [Suspect]
     Active Substance: TRIAMCINOLONE ACETONIDE
     Indication: Arthralgia
     Dosage: 40 MILLIGRAM, QD
     Route: 014
     Dates: start: 20200730, end: 20200730
  2. LIDOCAINE HYDROCHLORIDE MONOHYDRATE [Suspect]
     Active Substance: LIDOCAINE HYDROCHLORIDE
     Indication: Arthralgia
     Dosage: 1%, 5MILLILITER, 2 BOTTLES ONE TIME
     Route: 014
     Dates: start: 20200730, end: 20200730
  3. LYRICA [Concomitant]
     Active Substance: PREGABALIN
     Indication: Fibromyalgia
     Dosage: 25 MILLIGRAM, TID
     Route: 048
     Dates: start: 20200319
  4. LYRICA [Concomitant]
     Active Substance: PREGABALIN
     Indication: Fibromyalgia
     Dosage: 75 MILLIGRAM, BID
     Route: 048
     Dates: start: 20200319
  5. LAMICTAL [Concomitant]
     Active Substance: LAMOTRIGINE
     Indication: Fibromyalgia
     Dosage: 25 MILLIGRAM, BID
     Route: 048
     Dates: start: 20200319
  6. CLONAZEPAM [Concomitant]
     Active Substance: CLONAZEPAM
     Indication: Fibromyalgia
     Dosage: 1 MILLIGRAM, QD
     Route: 048
     Dates: start: 20200319
  7. MAGNESIUM OXIDE [Concomitant]
     Active Substance: MAGNESIUM OXIDE
     Indication: Fibromyalgia
     Dosage: 330 MILLIGRAM, QD
     Route: 048
     Dates: start: 20200319
  8. ZOLPIDEM TARTRATE [Concomitant]
     Active Substance: ZOLPIDEM TARTRATE
     Indication: Fibromyalgia
     Dosage: 5 MILLIGRAM, QD
     Route: 048
     Dates: start: 20200319
  9. TOPIRAMATE [Concomitant]
     Active Substance: TOPIRAMATE
     Indication: Fibromyalgia
     Dosage: 25 MILLIGRAM
     Route: 048
     Dates: start: 20200730
  10. PROCAINAMIDE HYDROCHLORIDE [Concomitant]
     Active Substance: PROCAINAMIDE HYDROCHLORIDE
     Indication: Product used for unknown indication
     Dosage: 1 MILLILITER
     Route: 042
     Dates: start: 20200730
  11. NEUROTROPIN [CYANOCOBALAMIN;LIDOCAINE HYDROCHLORIDE;PYRIDOXINE HYDROCH [Concomitant]
     Indication: Product used for unknown indication
     Dosage: 3 MILLILITER
     Route: 042
     Dates: start: 20200730

REACTIONS (4)
  - Injection site indentation [Recovered/Resolved with Sequelae]
  - Tendon rupture [Unknown]
  - Haemarthrosis [Recovered/Resolved]
  - Gait disturbance [Unknown]

NARRATIVE: CASE EVENT DATE: 20200730
